FAERS Safety Report 16754500 (Version 1)
Quarter: 2019Q4

REPORT INFORMATION
  Report Type: Spontaneous
  Country: US (occurrence: US)
  Receive Date: 20190828
  Receipt Date: 20190828
  Transmission Date: 20200122
  Serious: No
  Sender: FDA-Public Use
  Company Number: None

PATIENT
  Age: 33 Year
  Sex: Male
  Weight: 67.5 kg

DRUGS (1)
  1. COLGATE TOTAL SF WHITENING [Suspect]
     Active Substance: STANNOUS FLUORIDE
     Indication: DENTAL DISORDER PROPHYLAXIS
     Dosage: ?          OTHER ROUTE:USED TO BRUSH TEETH TWICE A DAY?
     Dates: start: 20190806, end: 20190815

REACTIONS (2)
  - Aphthous ulcer [None]
  - Tooth discolouration [None]

NARRATIVE: CASE EVENT DATE: 20190806
